FAERS Safety Report 25896173 (Version 1)
Quarter: 2025Q4

REPORT INFORMATION
  Report Type: Spontaneous
  Country: US (occurrence: US)
  Receive Date: 20251008
  Receipt Date: 20251008
  Transmission Date: 20260117
  Serious: Yes (Death, Life-Threatening, Other)
  Sender: AMGEN
  Company Number: US-AMGEN-USASP2025199785

PATIENT

DRUGS (1)
  1. EPOETIN ALFA [Suspect]
     Active Substance: ERYTHROPOIETIN
     Indication: Hypoxic-ischaemic encephalopathy
     Dosage: 1000 U/KG WAS GIVEN OVER 5 MIN ON DAYS 1, 2, 3, 4, AND 7 AFTER BIRTH
     Route: 040

REACTIONS (10)
  - Death [Fatal]
  - Adverse event [Unknown]
  - Cardio-respiratory arrest [Unknown]
  - Disseminated intravascular coagulation [Unknown]
  - Haemorrhage intracranial [Unknown]
  - Pulmonary hypertension [Unknown]
  - Acute kidney injury [Unknown]
  - Liver injury [Unknown]
  - Hypertension [Unknown]
  - Thrombosis [Unknown]
